FAERS Safety Report 7321064-1 (Version None)
Quarter: 2011Q1

REPORT INFORMATION
  Report Type: 
  Country: None (occurrence: None)
  Receive Date: 20110228
  Receipt Date: 20110216
  Transmission Date: 20110831
  Serious: Yes (Other)
  Sender: FDA-Public Use
  Company Number: DE-NICOBRDEV-2011-02100

PATIENT
  Sex: Female

DRUGS (2)
  1. UNKNOWN DRUGS [Concomitant]
     Indication: PRODUCT USED FOR UNKNOWN INDICATION
  2. KENTERA (WATSON LABORATORIES) [Suspect]
     Indication: PRODUCT USED FOR UNKNOWN INDICATION
     Dosage: UNK
     Route: 062

REACTIONS (2)
  - CONVULSION [None]
  - EPILEPSY [None]
